FAERS Safety Report 9751909 (Version 1)
Quarter: 2013Q4

REPORT INFORMATION
  Report Type: Report from Study
  Country: CA (occurrence: CA)
  Receive Date: 20131213
  Receipt Date: 20131213
  Transmission Date: 20140711
  Serious: Yes (Other)
  Sender: FDA-Public Use
  Company Number: CA-JNJFOC-20131204570

PATIENT
  Sex: Female

DRUGS (6)
  1. REMICADE [Suspect]
     Indication: CROHN^S DISEASE
     Route: 042
     Dates: start: 20120606
  2. REMICADE [Suspect]
     Indication: CROHN^S DISEASE
     Route: 042
     Dates: start: 20130711, end: 20130711
  3. CODEINE [Concomitant]
     Dosage: WHEN REQUIRED
     Route: 065
  4. IMURAN [Concomitant]
     Route: 065
  5. LOMOTIL [Concomitant]
     Route: 065
  6. IRON INFUSION [Concomitant]
     Route: 065

REACTIONS (2)
  - Renal neoplasm [Recovered/Resolved]
  - Retching [Unknown]
